FAERS Safety Report 9949722 (Version 1)
Quarter: 2014Q1

REPORT INFORMATION
  Report Type: Spontaneous
  Country: US (occurrence: None)
  Receive Date: 20140122
  Receipt Date: 20140122
  Transmission Date: 20141002
  Serious: Yes (Other)
  Sender: FDA-Public Use
  Company Number: M-13-002

PATIENT
  Age: 54 Year
  Sex: Female

DRUGS (4)
  1. DOXYCYCLINE [Suspect]
     Indication: ROSACEA
     Route: 048
     Dates: start: 2011
  2. METROGEL (METRONIDAZOLE) GEL, 1% [Concomitant]
  3. ORACEA (DOXYCYCLINE, USP) CAPSULE 40MG [Concomitant]
  4. BENADRYL [Concomitant]

REACTIONS (2)
  - Hypersensitivity [None]
  - Rash [None]
